FAERS Safety Report 10896985 (Version 1)
Quarter: 2015Q1

REPORT INFORMATION
  Report Type: Spontaneous
  Country: US (occurrence: None)
  Receive Date: 20150302
  Receipt Date: 20150302
  Transmission Date: 20150721
  Serious: Yes (Hospitalization)
  Sender: FDA-Public Use
  Company Number: None

PATIENT
  Age: 79 Year
  Sex: Male
  Weight: 104 kg

DRUGS (20)
  1. JANUVIA [Concomitant]
     Active Substance: SITAGLIPTIN PHOSPHATE
  2. DOCUSATE SODIUM (DULCOLAX) [Concomitant]
  3. FLOMAX [Concomitant]
     Active Substance: TAMSULOSIN HYDROCHLORIDE
  4. K-DUR [Concomitant]
     Active Substance: POTASSIUM CHLORIDE
  5. SITAGLIPTIN (JANUVIA) [Concomitant]
  6. FUROSEMIDE (LASIX) [Concomitant]
  7. ROSUVASTATIN (CRESTOR) [Concomitant]
  8. LANTUS [Concomitant]
     Active Substance: INSULIN GLARGINE
  9. ALBUTEROL. [Concomitant]
     Active Substance: ALBUTEROL
  10. LISINOPRIL (ZESTRIL) [Concomitant]
  11. GLIPIZIDE (GLUCLOTROL) [Concomitant]
  12. ALLOPURINOL (ZYLOPRIM) [Concomitant]
  13. WARFARIN [Suspect]
     Active Substance: WARFARIN
     Indication: ATRIAL FIBRILLATION
     Route: 048
  14. SILDENAFIL (REVATIO) [Concomitant]
  15. FERROUS SULFATE [Concomitant]
     Active Substance: FERROUS SULFATE\FERROUS SULFATE, DRIED
  16. METOPROLOL (LOPRESSOR) [Concomitant]
  17. KLOR-CON [Concomitant]
     Active Substance: POTASSIUM CHLORIDE
  18. PANTOPRAZOLE (PROTONIX) [Concomitant]
  19. XANAX [Concomitant]
     Active Substance: ALPRAZOLAM
  20. MULTIPLE VITAMIN-MINERALS (MULTIVITAMINS + MINERAL) [Concomitant]

REACTIONS (10)
  - Dyspnoea exertional [None]
  - Fatigue [None]
  - Gastrointestinal haemorrhage [None]
  - Post procedural haematuria [None]
  - Haemoglobin decreased [None]
  - Asthenia [None]
  - International normalised ratio increased [None]
  - Presyncope [None]
  - Dyspnoea [None]
  - Hypotension [None]

NARRATIVE: CASE EVENT DATE: 20140624
